FAERS Safety Report 8191948-3 (Version None)
Quarter: 2012Q1

REPORT INFORMATION
  Report Type: 
  Country: None (occurrence: None)
  Receive Date: 20120307
  Receipt Date: 20120302
  Transmission Date: 20120608
  Serious: Yes (Death)
  Sender: FDA-Public Use
  Company Number: US-PFIZER INC-2012040019

PATIENT
  Sex: Female
  Weight: 52.2 kg

DRUGS (24)
  1. PROMETHAZINE [Concomitant]
     Indication: NAUSEA
     Dosage: UNK
     Dates: start: 20111009, end: 20120128
  2. XGEVA [Concomitant]
     Indication: BONE LESION
     Dosage: UNK
     Dates: start: 20110216, end: 20120128
  3. CRIZOTINIB [Suspect]
     Indication: NON-SMALL CELL LUNG CANCER
     Dosage: 200 MG, 2X/DAY
     Route: 048
     Dates: start: 20110125, end: 20120202
  4. CELEXA [Concomitant]
     Indication: ANXIETY
     Dosage: UNK
     Dates: start: 20110405, end: 20120205
  5. ZOTRAN [Concomitant]
     Indication: NAUSEA
     Dosage: UNK
     Dates: start: 20101116, end: 20120204
  6. CREON [Concomitant]
     Indication: DIARRHOEA
     Dosage: UNK
     Dates: start: 20101029, end: 20120128
  7. MIRALAX [Concomitant]
     Indication: CONSTIPATION
     Dosage: UNK
     Dates: start: 20110712, end: 20120204
  8. MEGESTROL ACETATE [Concomitant]
     Indication: DECREASED APPETITE
     Dosage: UNK
     Dates: start: 20110722, end: 20120128
  9. MAGNESIUM CITRATE [Concomitant]
     Indication: CONSTIPATION
     Dosage: UNK
     Dates: start: 20110216, end: 20120128
  10. VITAMIN B-12 [Concomitant]
     Indication: SUPPLEMENTATION THERAPY
     Dosage: UNK
     Dates: start: 20110201, end: 20120128
  11. PRILOSEC [Concomitant]
     Indication: GASTROOESOPHAGEAL REFLUX DISEASE
     Dosage: UNK
     Dates: start: 20110118, end: 20120130
  12. REGLAN [Concomitant]
     Indication: NAUSEA
     Dosage: UNK
     Dates: start: 20111115, end: 20120209
  13. OXYCODONE [Concomitant]
     Indication: NECK PAIN
     Dosage: UNK
     Dates: start: 20110119, end: 20120131
  14. IMODIUM [Concomitant]
     Indication: DIARRHOEA
     Dosage: UNK
     Dates: start: 20100201, end: 20120128
  15. PREDNISONE [Concomitant]
     Indication: NAUSEA
     Dosage: UNK
     Dates: start: 20111115, end: 20120128
  16. MILK OF MAGNESIA TAB [Concomitant]
     Indication: CONSTIPATION
     Dosage: UNK
     Dates: start: 20111009, end: 20120130
  17. CALCIUM WITH VITAMIN D [Concomitant]
     Indication: SUPPLEMENTATION THERAPY
     Dosage: UNK
     Dates: start: 20110201, end: 20120128
  18. VITAMIN D [Concomitant]
     Indication: SUPPLEMENTATION THERAPY
     Dosage: UNK
     Dates: start: 20110201, end: 20120128
  19. SENNA [Concomitant]
     Indication: CONSTIPATION
     Dosage: UNK
     Dates: start: 20111009, end: 20120130
  20. LACTASE [Concomitant]
     Indication: LACTOSE INTOLERANCE
     Dosage: UNK
     Dates: start: 20001201, end: 20120128
  21. FOLIC ACID [Concomitant]
     Indication: SUPPLEMENTATION THERAPY
     Dosage: UNK
     Dates: start: 20100206, end: 20120128
  22. POTASSIUM CHLORIDE [Concomitant]
     Indication: HYPOKALAEMIA
     Dosage: UNK
     Dates: start: 20110527, end: 20120128
  23. LORAZEPAM [Concomitant]
     Indication: NAUSEA
     Dosage: UNK
     Dates: start: 20100201, end: 20120128
  24. COLACE [Concomitant]
     Indication: CONSTIPATION
     Dosage: UNK
     Dates: start: 20111009, end: 20120205

REACTIONS (1)
  - RESPIRATORY FAILURE [None]
